FAERS Safety Report 8270353-5 (Version None)
Quarter: 2012Q2

REPORT INFORMATION
  Report Type: 
  Country: None (occurrence: None)
  Receive Date: 20120405
  Receipt Date: 20120327
  Transmission Date: 20120825
  Serious: Yes (Life-Threatening, Hospitalization)
  Sender: FDA-Public Use
  Company Number: 2012PL000062

PATIENT
  Sex: Male
  Weight: 72.5755 kg

DRUGS (16)
  1. ARANESP [Suspect]
     Indication: PRODUCT USED FOR UNKNOWN INDICATION
     Dosage: 100 UG; SC
     Route: 058
  2. ONE ALFA (ALFACALCIDOL) [Suspect]
     Indication: PRODUCT USED FOR UNKNOWN INDICATION
  3. CANDESARTAN CILEXETIL [Concomitant]
  4. PANTOPRAZOLE SODIUM [Concomitant]
  5. LASIX [Concomitant]
  6. MAGNESIUM [Concomitant]
  7. PREDNISONE TAB [Concomitant]
  8. ALLOPURINOL [Suspect]
     Indication: PRODUCT USED FOR UNKNOWN INDICATION
  9. CALCIUM CARBONATE [Concomitant]
  10. CELLCEPT [Suspect]
     Indication: PRODUCT USED FOR UNKNOWN INDICATION
  11. LOPRESSOR [Concomitant]
  12. IMURAN [Concomitant]
  13. NORVASC [Concomitant]
  14. EPREX [Suspect]
     Indication: PRODUCT USED FOR UNKNOWN INDICATION
  15. DOXAZOSIN MESYLATE [Concomitant]
  16. MYFORTIC [Concomitant]

REACTIONS (3)
  - ANTI-ERYTHROPOIETIN ANTIBODY NEGATIVE [None]
  - HAEMOGLOBIN DECREASED [None]
  - APLASIA PURE RED CELL [None]
